FAERS Safety Report 8087486 (Version 4)
Quarter: 2013Q1

REPORT INFORMATION
  Report Type: Spontaneous
  Country: US (occurrence: US)
  Receive Date: 20110812
  Receipt Date: 20130301
  Transmission Date: 20140127
  Serious: Yes (Other)
  Sender: FDA-Public Use
  Company Number: US-JNJFOC-20110802755

PATIENT
  Sex: Male
  Weight: 104.33 kg

DRUGS (11)
  1. DURAGESIC [Suspect]
     Indication: PAIN MANAGEMENT
     Dosage: 200MCG/HR DOSE WORN AS TWO 100MCG/HR PATCHES
     Route: 062
  2. DURAGESIC [Suspect]
     Indication: PAIN MANAGEMENT
     Dosage: 150MCG/HR DOSE WORN AS TWO 75MCG/HR PATCHES
     Route: 062
     Dates: start: 201103, end: 201105
  3. DURAGESIC [Suspect]
     Indication: PAIN MANAGEMENT
     Dosage: 200MCG/HR DOSE WORN AS TWO 100MCG/HR PATCHES
     Route: 062
  4. DURAGESIC [Suspect]
     Indication: PAIN MANAGEMENT
     Dosage: 150MCG/HR DOSE WORN AS TWO 75MCG/HR PATCHES
     Route: 062
     Dates: start: 201105
  5. DURAGESIC [Suspect]
     Indication: PAIN MANAGEMENT
     Dosage: 200MCG/HR DOSE WORN AS TWO 100MCG/HR PATCHES
     Route: 062
  6. DURAGESIC [Suspect]
     Indication: BACK PAIN
     Dosage: 150MCG/HR DOSE WORN AS TWO 75MCG/HR PATCHES
     Route: 062
     Dates: start: 201103, end: 201105
  7. DURAGESIC [Suspect]
     Indication: BACK PAIN
     Dosage: 150MCG/HR DOSE WORN AS TWO 75MCG/HR PATCHES
     Route: 062
     Dates: start: 201105
  8. DURAGESIC [Suspect]
     Indication: BACK PAIN
     Dosage: 200MCG/HR DOSE WORN AS TWO 100MCG/HR PATCHES
     Route: 062
  9. DURAGESIC [Suspect]
     Indication: BACK PAIN
     Dosage: 200MCG/HR DOSE WORN AS TWO 100MCG/HR PATCHES
     Route: 062
  10. DURAGESIC [Suspect]
     Indication: BACK PAIN
     Dosage: 200MCG/HR DOSE WORN AS TWO 100MCG/HR PATCHES
     Route: 062
  11. OXYCODONE [Concomitant]
     Indication: BREAKTHROUGH PAIN
     Route: 048
     Dates: start: 2006

REACTIONS (13)
  - Withdrawal syndrome [Not Recovered/Not Resolved]
  - Bedridden [Not Recovered/Not Resolved]
  - Wrong technique in drug usage process [Recovered/Resolved]
  - Wrong technique in drug usage process [Not Recovered/Not Resolved]
  - Wrong technique in drug usage process [Not Recovered/Not Resolved]
  - Drug effect decreased [Recovered/Resolved]
  - Dermatitis contact [Recovered/Resolved]
  - Pain [Not Recovered/Not Resolved]
  - Malaise [Not Recovered/Not Resolved]
  - Nausea [Not Recovered/Not Resolved]
  - Eating disorder [Not Recovered/Not Resolved]
  - Abasia [Not Recovered/Not Resolved]
  - Activities of daily living impaired [Not Recovered/Not Resolved]
